FAERS Safety Report 15809935 (Version 1)
Quarter: 2019Q1

REPORT INFORMATION
  Report Type: Spontaneous
  Country: US (occurrence: US)
  Receive Date: 20190111
  Receipt Date: 20190111
  Transmission Date: 20190417
  Serious: No
  Sender: FDA-Public Use
  Company Number: US-ROCHE-2099970

PATIENT
  Age: 46 Year
  Sex: Male
  Weight: 59.02 kg

DRUGS (4)
  1. TEMAZEPAM. [Concomitant]
     Active Substance: TEMAZEPAM
     Indication: INSOMNIA
     Route: 048
     Dates: start: 201610, end: 201702
  2. RITUXAN [Suspect]
     Active Substance: RITUXIMAB
     Indication: PEMPHIGUS
     Dosage: 6 TIMES OVER A YEAR AND A HALF ;ONGOING: NO
     Route: 042
     Dates: start: 201610, end: 201802
  3. TEMAZEPAM. [Concomitant]
     Active Substance: TEMAZEPAM
     Dosage: 5 TO 10 MG AT NIGHT
     Route: 048
     Dates: start: 201705
  4. PREDNISONE. [Suspect]
     Active Substance: PREDNISONE
     Indication: PEMPHIGUS
     Dosage: TAPERING SCHEDULE ;ONGOING: NO
     Route: 048
     Dates: start: 201610, end: 20170501

REACTIONS (8)
  - Feeling of despair [Recovered/Resolved]
  - Red blood cell count decreased [Unknown]
  - Ill-defined disorder [Recovered/Resolved]
  - Photophobia [Recovered/Resolved]
  - Stress [Recovered/Resolved]
  - Off label use [Unknown]
  - Therapy non-responder [Unknown]
  - Intentional product use issue [Unknown]

NARRATIVE: CASE EVENT DATE: 201610
